FAERS Safety Report 25318064 (Version 1)
Quarter: 2025Q2

REPORT INFORMATION
  Report Type: Spontaneous
  Country: US (occurrence: US)
  Receive Date: 20250515
  Receipt Date: 20250515
  Transmission Date: 20250717
  Serious: Yes (Other)
  Sender: BAYER HEALTHCARE LLC
  Company Number: US-BAYER-2025A064486

PATIENT
  Age: 74 Year
  Sex: Female

DRUGS (2)
  1. ASPIRIN [Interacting]
     Active Substance: ASPIRIN
  2. WARFARIN [Interacting]
     Active Substance: WARFARIN

REACTIONS (2)
  - Gastrointestinal haemorrhage [None]
  - Warm autoimmune haemolytic anaemia [None]
